FAERS Safety Report 5341577-1 (Version None)
Quarter: 2007Q2

REPORT INFORMATION
  Report Type: 
  Country: None (occurrence: None)
  Receive Date: 20070601
  Receipt Date: 20070531
  Transmission Date: 20071010
  Serious: Yes (Other)
  Sender: FDA-Public Use
  Company Number: GB-JNJFOC-20070502692

PATIENT
  Age: 61 Year
  Sex: Male

DRUGS (4)
  1. RISPERDAL CONSTA [Suspect]
  2. RISPERDAL CONSTA [Suspect]
     Indication: SCHIZOPHRENIA
  3. PARACETAMOL [Suspect]
     Indication: OVERDOSE
  4. CHLORPROMAZINE [Concomitant]
     Indication: PARKINSONISM

REACTIONS (5)
  - ANOREXIA [None]
  - OVERDOSE [None]
  - PRESCRIBED OVERDOSE [None]
  - VOMITING [None]
  - WEIGHT DECREASED [None]
